FAERS Safety Report 6609281-7 (Version None)
Quarter: 2010Q1

REPORT INFORMATION
  Report Type: 
  Country: None (occurrence: None)
  Receive Date: 20100224
  Receipt Date: 20100209
  Transmission Date: 20100710
  Serious: Yes (Hospitalization)
  Sender: FDA-Public Use
  Company Number: US-JNJFOC-20091203058

PATIENT
  Age: 79 Year
  Sex: Male
  Weight: 85.7298 kg

DRUGS (14)
  1. DECITABINE                  POWDER LYOPHILIZED [Suspect]
     Indication: MYELODYSPLASTIC SYNDROME
     Dosage: 39 MG, SUBCUTANEOUS
     Route: 058
     Dates: start: 20091116
  2. FOLIC ACID [Concomitant]
  3. METOPROLOL [Concomitant]
  4. PLAVIX [Concomitant]
  5. ASPIRIN [Concomitant]
  6. RAMIPRIL [Concomitant]
  7. FUROSEMIDE [Concomitant]
  8. TRAMADOL HCL [Concomitant]
  9. AMBIEN [Concomitant]
  10. CARFATE [Concomitant]
  11. SPIRIVA [Concomitant]
  12. ADVAIR DISKUS 100/50 [Concomitant]
  13. VITAMIN C [Concomitant]
  14. MULTI-VITAMINS [Concomitant]

REACTIONS (11)
  - ANAEMIA [None]
  - ANGINA PECTORIS [None]
  - CHILLS [None]
  - CHRONIC OBSTRUCTIVE PULMONARY DISEASE [None]
  - CONDITION AGGRAVATED [None]
  - CONSTIPATION [None]
  - DYSPNOEA [None]
  - GASTROINTESTINAL HAEMORRHAGE [None]
  - HYPOAESTHESIA [None]
  - PNEUMONIA [None]
  - PRODUCTIVE COUGH [None]
